FAERS Safety Report 9294279 (Version 1)
Quarter: 2013Q2

REPORT INFORMATION
  Report Type: Spontaneous
  Country: US (occurrence: US)
  Receive Date: 20130516
  Receipt Date: 20130516
  Transmission Date: 20140414
  Serious: Yes (Other)
  Sender: FDA-Public Use
  Company Number: US-AMGEN-USASP2013034360

PATIENT
  Sex: Female

DRUGS (3)
  1. ENBREL [Suspect]
     Indication: PSORIATIC ARTHROPATHY
     Dosage: UNK
  2. SYNTHROID [Concomitant]
     Dosage: UNK
  3. CLIMARA [Concomitant]
     Dosage: UNK

REACTIONS (2)
  - Coeliac disease [Recovering/Resolving]
  - Alopecia [Unknown]
